FAERS Safety Report 10526929 (Version 1)
Quarter: 2014Q4

REPORT INFORMATION
  Report Type: Spontaneous
  Country: US (occurrence: None)
  Receive Date: 20141015
  Receipt Date: 20141015
  Transmission Date: 20150528
  Serious: Yes (Other)
  Sender: FDA-Public Use
  Company Number: None

PATIENT
  Age: 14 Year
  Sex: Male
  Weight: 107.05 kg

DRUGS (5)
  1. EQUATE NITETIME [Suspect]
     Active Substance: ACETAMINOPHEN\DEXTROMETHORPHAN HYDROBROMIDE\DOXYLAMINE SUCCINATE
     Indication: SNEEZING
     Route: 048
     Dates: start: 20141012, end: 20141012
  2. EQUATE NITETIME [Suspect]
     Active Substance: ACETAMINOPHEN\DEXTROMETHORPHAN HYDROBROMIDE\DOXYLAMINE SUCCINATE
     Indication: HEADACHE
     Route: 048
     Dates: start: 20141012, end: 20141012
  3. EQUATE NITETIME [Suspect]
     Active Substance: ACETAMINOPHEN\DEXTROMETHORPHAN HYDROBROMIDE\DOXYLAMINE SUCCINATE
     Route: 048
     Dates: start: 20141012, end: 20141012
  4. EQUATE NITETIME [Suspect]
     Active Substance: ACETAMINOPHEN\DEXTROMETHORPHAN HYDROBROMIDE\DOXYLAMINE SUCCINATE
     Indication: PAIN
     Route: 048
     Dates: start: 20141012, end: 20141012
  5. EQUATE NITETIME [Suspect]
     Active Substance: ACETAMINOPHEN\DEXTROMETHORPHAN HYDROBROMIDE\DOXYLAMINE SUCCINATE
     Indication: NASOPHARYNGITIS
     Route: 048
     Dates: start: 20141012, end: 20141012

REACTIONS (4)
  - Dyspnoea [None]
  - Cough [None]
  - Incorrect dose administered [None]
  - Reaction to drug excipients [None]

NARRATIVE: CASE EVENT DATE: 20141012
